FAERS Safety Report 5070468-9 (Version None)
Quarter: 2006Q3

REPORT INFORMATION
  Report Type: 
  Country: None (occurrence: None)
  Receive Date: 20060804
  Receipt Date: 20060724
  Transmission Date: 20061208
  Serious: Yes (Hospitalization)
  Sender: FDA-Public Use
  Company Number: IT-ABBOTT-06P-083-0338782-00

PATIENT
  Sex: Female
  Weight: 66 kg

DRUGS (7)
  1. HUMIRA [Suspect]
     Indication: RHEUMATOID ARTHRITIS
     Route: 058
     Dates: start: 20050318, end: 20060601
  2. RABEPRAZOLE SODIUM [Concomitant]
     Indication: PROPHYLAXIS AGAINST GASTROINTESTINAL ULCER
  3. ACETYLSALICYLIC ACID SRT [Concomitant]
     Indication: ISCHAEMIC CARDIOMYOPATHY
  4. ENALAPRIL MALEATE [Concomitant]
     Indication: HYPERTENSION
  5. RAMIPRIL [Concomitant]
     Indication: HYPERTENSION
  6. LEKOVIT CA [Concomitant]
     Indication: OSTEOPOROSIS
     Dosage: 1000+800 UI
  7. COMMERCIAL HUMIRA [Concomitant]
     Indication: RHEUMATOID ARTHRITIS
     Route: 058
     Dates: start: 20040910

REACTIONS (4)
  - COUGH [None]
  - DYSPNOEA [None]
  - MALAISE [None]
  - PYREXIA [None]
